FAERS Safety Report 17070601 (Version 2)
Quarter: 2019Q4

REPORT INFORMATION
  Report Type: Spontaneous
  Country: US (occurrence: US)
  Receive Date: 20191125
  Receipt Date: 20191209
  Transmission Date: 20200122
  Serious: Yes (Hospitalization)
  Sender: FDA-Public Use
  Company Number: US-JNJFOC-20191123003

PATIENT
  Age: 19 Year
  Sex: Female
  Weight: 49.94 kg

DRUGS (1)
  1. STELARA [Suspect]
     Active Substance: USTEKINUMAB
     Indication: CROHN^S DISEASE
     Route: 058
     Dates: start: 201906

REACTIONS (7)
  - Dehydration [Unknown]
  - Urinary tract infection [Recovered/Resolved]
  - Vulvovaginal mycotic infection [Recovered/Resolved]
  - Arthropod bite [Recovered/Resolved]
  - Adverse event [Unknown]
  - Gastritis [Unknown]
  - Crohn^s disease [Recovered/Resolved]

NARRATIVE: CASE EVENT DATE: 2019
